FAERS Safety Report 8095798-8 (Version None)
Quarter: 2012Q1

REPORT INFORMATION
  Report Type: 
  Country: None (occurrence: None)
  Receive Date: 20120129
  Receipt Date: 20111214
  Transmission Date: 20120608
  Serious: No
  Sender: FDA-Public Use
  Company Number: US-ABBOTT-11P-163-0883313-00

PATIENT
  Sex: Male
  Weight: 97.156 kg

DRUGS (2)
  1. HUMIRA [Suspect]
     Indication: ANKYLOSING SPONDYLITIS
     Dates: start: 20111001
  2. TRAZODONE HCL [Concomitant]
     Indication: SLEEP DISORDER THERAPY
     Dates: start: 20040101

REACTIONS (8)
  - BACK PAIN [None]
  - PRE-EXISTING CONDITION IMPROVED [None]
  - FATIGUE [None]
  - THERAPEUTIC RESPONSE UNEXPECTED [None]
  - IMPAIRED WORK ABILITY [None]
  - PAIN [None]
  - MUSCLE SPASMS [None]
  - MOVEMENT DISORDER [None]
